FAERS Safety Report 9712245 (Version 1)
Quarter: 2013Q4

REPORT INFORMATION
  Report Type: Spontaneous
  Country: US (occurrence: US)
  Receive Date: 20131126
  Receipt Date: 20131126
  Transmission Date: 20140711
  Serious: No
  Sender: FDA-Public Use
  Company Number: US-BRISTOL-MYERS SQUIBB COMPANY-19152743

PATIENT
  Age: 59 Year
  Sex: Male
  Weight: 102.04 kg

DRUGS (4)
  1. BYDUREON [Suspect]
     Route: 058
  2. METFORMIN [Concomitant]
  3. GLYBURIDE [Concomitant]
  4. ACTOS [Concomitant]
     Dosage: TAB

REACTIONS (2)
  - Injection site mass [Not Recovered/Not Resolved]
  - Injection site bruising [Not Recovered/Not Resolved]
